FAERS Safety Report 11925381 (Version 1)
Quarter: 2016Q1

REPORT INFORMATION
  Report Type: Spontaneous
  Country: CA (occurrence: CA)
  Receive Date: 20160118
  Receipt Date: 20160118
  Transmission Date: 20160526
  Serious: Yes (Life-Threatening, Hospitalization, Other)
  Sender: FDA-Public Use
  Company Number: CA-UCBSA-2016001739

PATIENT
  Age: 28 Year
  Sex: Female

DRUGS (9)
  1. DEMULEN [Concomitant]
     Active Substance: ETHINYL ESTRADIOL\ETHYNODIOL
     Indication: PRODUCT USED FOR UNKNOWN INDICATION
     Dosage: 30/21, 1 DF, ONCE DAILY (QD)
     Route: 048
  2. CIMZIA [Suspect]
     Active Substance: CERTOLIZUMAB PEGOL
     Indication: JUVENILE IDIOPATHIC ARTHRITIS
     Dosage: 200 MG, EV 2 WEEKS(QOW)
     Route: 058
     Dates: start: 20141201, end: 20151201
  3. SALBUTAMOL [Concomitant]
     Active Substance: ALBUTEROL
     Indication: PRODUCT USED FOR UNKNOWN INDICATION
     Dosage: 300 ?G, 2X/DAY (BID), 300 MCG /INH PRN
  4. PROLIA [Suspect]
     Active Substance: DENOSUMAB
     Indication: PRODUCT USED FOR UNKNOWN INDICATION
     Dosage: 60 MG, EV 6 MONTHS
     Route: 058
     Dates: start: 20141203, end: 20151203
  5. AMITRIPTYLINE [Concomitant]
     Active Substance: AMITRIPTYLINE
     Indication: PRODUCT USED FOR UNKNOWN INDICATION
     Dosage: 25 MG, ONCE DAILY (QD) AT BEDTIME
     Route: 048
  6. IPRATROPIUM [Concomitant]
     Active Substance: IPRATROPIUM
     Indication: PRODUCT USED FOR UNKNOWN INDICATION
     Dosage: 80 ?G, 4X/DAY (QID), 20 MCG/INH
  7. HYDROMORPHONE [Concomitant]
     Active Substance: HYDROMORPHONE
     Indication: PRODUCT USED FOR UNKNOWN INDICATION
     Dosage: 1-2 MG BID PRN
     Route: 048
  8. PREGABALIN. [Concomitant]
     Active Substance: PREGABALIN
     Indication: PRODUCT USED FOR UNKNOWN INDICATION
     Dosage: 150 MG, 2X/DAY (BID) (QAM+ QHS)
     Route: 048
  9. PREDNISONE. [Concomitant]
     Active Substance: PREDNISONE
     Indication: PRODUCT USED FOR UNKNOWN INDICATION
     Dosage: 3 MG, ONCE DAILY (QD) AT BEDTIME
     Route: 048

REACTIONS (4)
  - Septic shock [Unknown]
  - Ulcerative keratitis [Unknown]
  - Febrile neutropenia [Unknown]
  - Cholestasis [Unknown]

NARRATIVE: CASE EVENT DATE: 201504
